FAERS Safety Report 8777607 (Version 1)
Quarter: 2012Q4

REPORT INFORMATION
  Report Type: 
  Country: FR (occurrence: FR)
  Receive Date: 20120911
  Receipt Date: 20120911
  Transmission Date: 20130627
  Serious: Yes (Hospitalization, Other)
  Sender: FDA-Public Use
  Company Number: PHHY2012FR077994

PATIENT
  Age: 57 Year
  Sex: Male

DRUGS (4)
  1. MIFLONIL [Suspect]
     Indication: CHRONIC OBSTRUCTIVE PULMONARY DISEASE
     Dosage: 400 ug, QD
     Dates: start: 201202, end: 20120812
  2. ONBREZ [Suspect]
     Indication: CHRONIC OBSTRUCTIVE PULMONARY DISEASE
     Dosage: 150 ug, QD
     Dates: start: 201202, end: 20120812
  3. BRONCHODUAL [Suspect]
     Indication: CHRONIC OBSTRUCTIVE PULMONARY DISEASE
     Dosage: 8 inhalation daily
     Dates: start: 201202, end: 20120812
  4. SPIRIVA [Suspect]
     Indication: CHRONIC OBSTRUCTIVE PULMONARY DISEASE
     Dosage: 1 DF, BID
     Dates: start: 201202

REACTIONS (8)
  - Stress cardiomyopathy [Recovered/Resolved]
  - Dyspnoea [Recovering/Resolving]
  - Electrocardiogram ST segment elevation [Unknown]
  - Ejection fraction decreased [Unknown]
  - Hyperkinesia [Unknown]
  - Hypokinesia [Unknown]
  - Choking sensation [Unknown]
  - Respiratory distress [Recovered/Resolved]
